FAERS Safety Report 14979407 (Version 1)
Quarter: 2018Q2

REPORT INFORMATION
  Report Type: Report from Study
  Country: US (occurrence: US)
  Receive Date: 20180606
  Receipt Date: 20180606
  Transmission Date: 20180711
  Serious: Yes (Other)
  Sender: FDA-Public Use
  Company Number: US-ASTRAZENECA-2018SE45761

PATIENT
  Age: 69 Year
  Sex: Female

DRUGS (33)
  1. GENERIC NEXIUM [Suspect]
     Active Substance: ESOMEPRAZOLE MAGNESIUM
     Dosage: 40.0MG UNKNOWN
     Route: 048
     Dates: start: 2017
  2. VITAMIN B-6 [Concomitant]
     Active Substance: PYRIDOXINE
     Dosage: 100.0MG UNKNOWN
  3. ALLOPURINOL. [Concomitant]
     Active Substance: ALLOPURINOL
     Dosage: 100.0MG UNKNOWN
  4. VENLAFAXINE HYDROCHLORIDE. [Concomitant]
     Active Substance: VENLAFAXINE HYDROCHLORIDE
     Dosage: 75.0MG UNKNOWN
  5. CALCITRIOL. [Concomitant]
     Active Substance: CALCITRIOL
  6. LISINOPRIL. [Suspect]
     Active Substance: LISINOPRIL
     Dosage: 10.0MG UNKNOWN
     Route: 048
  7. FUROSEMIDE. [Concomitant]
     Active Substance: FUROSEMIDE
     Dosage: 20.0MG UNKNOWN
  8. NORTRIPTYLINE HYDROCHLORIDE. [Concomitant]
     Active Substance: NORTRIPTYLINE HYDROCHLORIDE
     Dosage: 10.0MG UNKNOWN
  9. ASPIRIN. [Concomitant]
     Active Substance: ASPIRIN
     Dosage: 325.0MG UNKNOWN
  10. FLONASE ALLERGY RELIEF [Concomitant]
     Active Substance: FLUTICASONE PROPIONATE
  11. TROSPIUM CHLORIDE. [Concomitant]
     Active Substance: TROSPIUM CHLORIDE
     Dosage: 20.0MG UNKNOWN
  12. ONDANSETRON HYDROCHLORIDE. [Concomitant]
     Active Substance: ONDANSETRON HYDROCHLORIDE
     Dosage: 8.0MG UNKNOWN
  13. VOLTAREN [Concomitant]
     Active Substance: DICLOFENAC SODIUM
     Dosage: 1 % GEL (GRAM)
  14. NEXIUM [Suspect]
     Active Substance: ESOMEPRAZOLE MAGNESIUM
     Indication: GASTROOESOPHAGEAL REFLUX DISEASE
     Route: 048
  15. NITROGLYCERIN. [Concomitant]
     Active Substance: NITROGLYCERIN
     Dosage: 0.4MG UNKNOWN
  16. LYNPARZA [Suspect]
     Active Substance: OLAPARIB
     Indication: OVARIAN CANCER
     Route: 048
     Dates: start: 201804
  17. MAGNESIUM OXIDE. [Concomitant]
     Active Substance: MAGNESIUM OXIDE
     Dosage: 400.0MG UNKNOWN
  18. VITAMIN D3 [Concomitant]
     Active Substance: CHOLECALCIFEROL
     Dosage: 1000.0IU UNKNOWN
  19. BUPROPION HYDROBROMIDE [Concomitant]
     Active Substance: BUPROPION HYDROBROMIDE
  20. MEMANTINE HYDROCHLORIDE. [Concomitant]
     Active Substance: MEMANTINE HYDROCHLORIDE
     Dosage: 10.0MG UNKNOWN
  21. MULTIVITAMINS [Concomitant]
     Active Substance: VITAMINS
  22. BENZONATATE. [Concomitant]
     Active Substance: BENZONATATE
     Dosage: 100.0MG UNKNOWN
  23. NEXIUM [Suspect]
     Active Substance: ESOMEPRAZOLE MAGNESIUM
     Indication: GASTROOESOPHAGEAL REFLUX DISEASE
     Route: 048
  24. NEXIUM [Suspect]
     Active Substance: ESOMEPRAZOLE MAGNESIUM
     Indication: GASTROOESOPHAGEAL REFLUX DISEASE
     Route: 048
     Dates: start: 201712
  25. METOPROLOL TARTRATE. [Suspect]
     Active Substance: METOPROLOL TARTRATE
     Dosage: 25.0MG UNKNOWN
     Route: 048
  26. CALCITRIOL. [Concomitant]
     Active Substance: CALCITRIOL
     Dosage: 0.25UG UNKNOWN
  27. NOVOLOG [Concomitant]
     Active Substance: INSULIN ASPART
     Dosage: 100/ML INSULN PEN
  28. ATORVASTATIN CALCIUM. [Concomitant]
     Active Substance: ATORVASTATIN CALCIUM
     Dosage: 40.0MG UNKNOWN
  29. TRAMADOL HYDROCHLORIDE. [Concomitant]
     Active Substance: TRAMADOL HYDROCHLORIDE
     Dosage: 50.0MG UNKNOWN
  30. COMPAZINE [Concomitant]
     Active Substance: PROCHLORPERAZINE MALEATE
     Dosage: 10.0MG UNKNOWN
  31. LYNPARZA [Suspect]
     Active Substance: OLAPARIB
     Indication: OVARIAN CANCER
     Route: 048
     Dates: start: 201804
  32. LANTUS SOLOSTAR [Concomitant]
     Active Substance: INSULIN GLARGINE
  33. CLARITIN [Concomitant]
     Active Substance: LORATADINE
     Dosage: 10.0MG UNKNOWN

REACTIONS (14)
  - Transient ischaemic attack [Unknown]
  - Renal failure [Unknown]
  - Cerebrovascular disorder [Unknown]
  - Neoplasm [Unknown]
  - Headache [Unknown]
  - Memory impairment [Unknown]
  - Nausea [Unknown]
  - Insomnia [Unknown]
  - Bladder neoplasm [Unknown]
  - Intentional product use issue [Unknown]
  - Gastrooesophageal reflux disease [Unknown]
  - Ovarian cancer [Unknown]
  - Drug ineffective [Unknown]
  - Sluggishness [Unknown]

NARRATIVE: CASE EVENT DATE: 2012
